FAERS Safety Report 21364194 (Version 1)
Quarter: 2022Q3

REPORT INFORMATION
  Report Type: Spontaneous
  Country: US (occurrence: US)
  Receive Date: 20220922
  Receipt Date: 20220922
  Transmission Date: 20221026
  Serious: Yes (Other)
  Sender: FDA-Public Use
  Company Number: US-INDIVIOR EUROPE LIMITED-INDV-135990-2022

PATIENT
  Sex: Female
  Weight: 2.58 kg

DRUGS (17)
  1. BUPRENORPHINE\NALOXONE [Suspect]
     Active Substance: BUPRENORPHINE\NALOXONE
     Indication: Pelvic pain
     Dosage: 0.5 MILLIGRAM, BID (WEEK 1)
     Route: 064
  2. BUPRENORPHINE\NALOXONE [Suspect]
     Active Substance: BUPRENORPHINE\NALOXONE
     Dosage: 0.5 MILLIGRAM, TID (WEEK 2)
     Route: 064
  3. BUPRENORPHINE HYDROCHLORIDE [Suspect]
     Active Substance: BUPRENORPHINE HYDROCHLORIDE
     Indication: Pelvic pain
     Dosage: 1 MILLIGRAM, BID (WEEK 3)
     Route: 064
  4. BUPRENORPHINE HYDROCHLORIDE [Suspect]
     Active Substance: BUPRENORPHINE HYDROCHLORIDE
     Dosage: 1 TABLET TWICE DAILY WITH NOON 1/2 TABLET FOR 4 DAYS, THEN 1 TABLET 3 TIMES DAILY FOR 3 DAYS (WEEK 4
     Route: 064
  5. BUPRENORPHINE HYDROCHLORIDE [Suspect]
     Active Substance: BUPRENORPHINE HYDROCHLORIDE
     Dosage: 1 TABLET 3 TIMES DAILY WITH 1/2 TABLET DAILY AS NEEDED (WEEK 5)
     Route: 064
  6. BUPRENORPHINE HYDROCHLORIDE [Suspect]
     Active Substance: BUPRENORPHINE HYDROCHLORIDE
     Dosage: 1 TABLET 3 TIMES DAILY WITH 1/2 TABLET TWICE DAILY AS NEEDED (WEEK 6)
     Route: 064
  7. BUPRENORPHINE HYDROCHLORIDE [Suspect]
     Active Substance: BUPRENORPHINE HYDROCHLORIDE
     Dosage: 10 MILLIGRAM PER DAY IN DIVIDED DOSES (WEEK 28)
     Route: 064
  8. MORPHINE SULFATE [Suspect]
     Active Substance: MORPHINE SULFATE
     Indication: Pelvic pain
     Dosage: 15 MILLIGRAM, Q8H
     Route: 064
  9. MORPHINE SULFATE [Suspect]
     Active Substance: MORPHINE SULFATE
     Dosage: 15 MILLIGRAM, BID (WEEK 1)
     Route: 064
  10. MORPHINE SULFATE [Suspect]
     Active Substance: MORPHINE SULFATE
     Dosage: 15 MILLIGRAM, AT NIGHT (WEEK 2)
     Route: 064
  11. OXYCODONE [Suspect]
     Active Substance: OXYCODONE
     Indication: Pelvic pain
     Dosage: 10 TO 15 MG EVERY FOUR HOURS AS NEEDED (MAXIMUM 50 MG/D)
     Route: 064
  12. OXYCODONE [Suspect]
     Active Substance: OXYCODONE
     Dosage: 10 MG MAX OF 6 TABLETS DAILY (WEEK 1 AND 2)
     Route: 064
  13. OXYCODONE [Suspect]
     Active Substance: OXYCODONE
     Dosage: MAX 5.5 TABLETS FOR 4 DAYS FOLLOWED BY 5 TABLETS FOR 3 DAYS (WEEK 3)
     Route: 064
  14. OXYCODONE [Suspect]
     Active Substance: OXYCODONE
     Dosage: MAX 4 TABS FOR 4 DAYS FOLLOWED BY 3 TABS FOR 3 DAYS (WEEK 4)
     Route: 064
  15. OXYCODONE [Suspect]
     Active Substance: OXYCODONE
     Dosage: MAX 2.5 TABS FOR 4 DAYS FOLLOWED BY 2 TABS FOR 3 DAYS (WEEK 5)
     Route: 064
  16. OXYCODONE [Suspect]
     Active Substance: OXYCODONE
     Dosage: MAX ONE TABLET FOR 4 DAYS (WEEK 6)
     Route: 064
  17. NICOTINE [Suspect]
     Active Substance: NICOTINE
     Indication: Product used for unknown indication
     Dosage: UNK
     Route: 064

REACTIONS (2)
  - Tachycardia foetal [Recovered/Resolved]
  - Foetal exposure during pregnancy [Recovered/Resolved]
